FAERS Safety Report 9640397 (Version 1)
Quarter: 2013Q4

REPORT INFORMATION
  Report Type: Spontaneous
  Country: US (occurrence: None)
  Receive Date: 20131022
  Receipt Date: 20131022
  Transmission Date: 20140711
  Serious: No
  Sender: FDA-Public Use
  Company Number: None

PATIENT
  Age: 69 None
  Sex: Female

DRUGS (7)
  1. SILDENAFIL CITRATE [Suspect]
     Indication: PULMONARY ARTERIAL HYPERTENSION
     Route: 048
     Dates: start: 20130926, end: 20130928
  2. LANTUS [Concomitant]
  3. CARTIC [Concomitant]
  4. LIPCTOR [Concomitant]
  5. GABERPENTIN [Concomitant]
  6. ASPIRIN [Concomitant]
  7. VITAMIN D 5000 [Concomitant]

REACTIONS (4)
  - Hypersensitivity [None]
  - Rash generalised [None]
  - Skin disorder [None]
  - Erythema [None]
